FAERS Safety Report 8163999-6 (Version None)
Quarter: 2012Q1

REPORT INFORMATION
  Report Type: 
  Country: None (occurrence: None)
  Receive Date: 20120224
  Receipt Date: 20120210
  Transmission Date: 20120608
  Serious: Yes (Other)
  Sender: FDA-Public Use
  Company Number: CHPA2012US003110

PATIENT
  Age: 47 Year
  Sex: Female

DRUGS (2)
  1. AMBIEN [Concomitant]
     Dosage: 12.5
  2. EXCEDRIN (MIGRAINE) [Suspect]
     Indication: MIGRAINE
     Dosage: 2 DF MORN/NIGHT
     Route: 048
     Dates: end: 20120101

REACTIONS (4)
  - CHEST PAIN [None]
  - OVERDOSE [None]
  - INSOMNIA [None]
  - LOSS OF CONSCIOUSNESS [None]
